FAERS Safety Report 13941639 (Version 1)
Quarter: 2017Q3

REPORT INFORMATION
  Report Type: Spontaneous
  Country: GB (occurrence: GB)
  Receive Date: 20170906
  Receipt Date: 20170906
  Transmission Date: 20171127
  Serious: Yes (Other)
  Sender: FDA-Public Use
  Company Number: GB-TEVA-802273ACC

PATIENT
  Age: 72 Year
  Sex: Male
  Weight: 80.73 kg

DRUGS (1)
  1. RANITIDINE. [Suspect]
     Active Substance: RANITIDINE
     Indication: BARRETT^S OESOPHAGUS
     Dosage: 300 MILLIGRAM DAILY; NOCTE
     Route: 048
     Dates: start: 20140317, end: 20141022

REACTIONS (4)
  - Nausea [Not Recovered/Not Resolved]
  - Visual impairment [Unknown]
  - Malaise [Not Recovered/Not Resolved]
  - Headache [Not Recovered/Not Resolved]

NARRATIVE: CASE EVENT DATE: 20140321
